FAERS Safety Report 6903917-9 (Version None)
Quarter: 2010Q3

REPORT INFORMATION
  Report Type: 
  Country: None (occurrence: None)
  Receive Date: 20100804
  Receipt Date: 20090203
  Transmission Date: 20110219
  Serious: No
  Sender: FDA-Public Use
  Company Number: US-PFIZER INC-2008068848

PATIENT
  Sex: Female
  Weight: 81.3 kg

DRUGS (9)
  1. LYRICA [Suspect]
     Indication: NEUROPATHY PERIPHERAL
     Dosage: UNK
     Route: 048
     Dates: start: 20071027
  2. ZOCOR [Concomitant]
  3. PLAVIX [Concomitant]
  4. LOPRESSOR [Concomitant]
  5. PERSANTINE [Concomitant]
  6. HERBAL NOS/MINERALS NOS [Concomitant]
  7. XANAX [Concomitant]
     Dosage: UNK
  8. GLYBURIDE [Concomitant]
     Dosage: UNK
  9. SYNTHROID [Concomitant]
     Dosage: UNK

REACTIONS (7)
  - BLOOD GLUCOSE INCREASED [None]
  - BODY HEIGHT DECREASED [None]
  - DECREASED APPETITE [None]
  - DYSPNOEA [None]
  - GAIT DISTURBANCE [None]
  - PANIC ATTACK [None]
  - WEIGHT DECREASED [None]
